FAERS Safety Report 13995682 (Version 4)
Quarter: 2017Q4

REPORT INFORMATION
  Report Type: Report from Study
  Country: US (occurrence: US)
  Receive Date: 20170921
  Receipt Date: 20171204
  Transmission Date: 20180321
  Serious: Yes (Hospitalization, Other)
  Sender: FDA-Public Use
  Company Number: US-GILEAD-2017-0294070

PATIENT
  Age: 53 Year
  Sex: Male

DRUGS (1)
  1. AMBRISENTAN [Suspect]
     Active Substance: AMBRISENTAN
     Indication: PRODUCT USED FOR UNKNOWN INDICATION
     Dosage: 10 MG, UNK
     Route: 065
     Dates: start: 20170607

REACTIONS (4)
  - Pneumothorax spontaneous [Recovered/Resolved]
  - Chronic obstructive pulmonary disease [Unknown]
  - Pulmonary arterial hypertension [Unknown]
  - Weight decreased [Unknown]
